FAERS Safety Report 10567689 (Version 1)
Quarter: 2014Q4

REPORT INFORMATION
  Report Type: Spontaneous
  Country: US (occurrence: None)
  Receive Date: 20141105
  Receipt Date: 20141105
  Transmission Date: 20150529
  Serious: Yes (Hospitalization)
  Sender: FDA-Public Use
  Company Number: None

PATIENT
  Age: 53 Year
  Sex: Female
  Weight: 85.5 kg

DRUGS (2)
  1. CYTARABINE. [Suspect]
     Active Substance: CYTARABINE
     Dates: end: 20141011
  2. IDARUBICIN [Suspect]
     Active Substance: IDARUBICIN
     Dates: end: 20141010

REACTIONS (3)
  - Acute respiratory failure [None]
  - Sepsis [None]
  - Gastrointestinal necrosis [None]

NARRATIVE: CASE EVENT DATE: 20141016
